FAERS Safety Report 19217808 (Version 1)
Quarter: 2021Q2

REPORT INFORMATION
  Report Type: Spontaneous
  Country: US (occurrence: US)
  Receive Date: 20210505
  Receipt Date: 20210505
  Transmission Date: 20210717
  Serious: Yes (Other)
  Sender: FDA-Public Use
  Company Number: US-PURDUE-USA-2021-0253921

PATIENT
  Sex: Male

DRUGS (2)
  1. COLACE [Suspect]
     Active Substance: DOCUSATE SODIUM
     Dosage: 3 TABLET, DAILY
     Route: 048
     Dates: start: 20210424
  2. COLACE [Suspect]
     Active Substance: DOCUSATE SODIUM
     Indication: CONSTIPATION
     Dosage: 1 TABLET, DAILY
     Route: 048

REACTIONS (4)
  - Haematochezia [Unknown]
  - Gastrointestinal disorder [Not Recovered/Not Resolved]
  - Faeces hard [Unknown]
  - Dysuria [Unknown]
